FAERS Safety Report 5478092-0 (Version None)
Quarter: 2007Q4

REPORT INFORMATION
  Report Type: 
  Country: None (occurrence: None)
  Receive Date: 20071005
  Receipt Date: 20061005
  Transmission Date: 20080405
  Serious: No
  Sender: FDA-Public Use
  Company Number: US-BRISTOL-MYERS SQUIBB COMPANY-13532346

PATIENT
  Sex: Female

DRUGS (2)
  1. AVAPRO [Suspect]
     Dates: start: 20060101
  2. LIPITOR [Concomitant]

REACTIONS (2)
  - DRY MOUTH [None]
  - SENSORY DISTURBANCE [None]
